FAERS Safety Report 5639133-0 (Version None)
Quarter: 2008Q1

REPORT INFORMATION
  Report Type: 
  Country: None (occurrence: None)
  Receive Date: 20080226
  Receipt Date: 20080212
  Transmission Date: 20080703
  Serious: Yes (Hospitalization)
  Sender: FDA-Public Use
  Company Number: JP-ROCHE-547593

PATIENT
  Sex: Female

DRUGS (2)
  1. PEGASYS [Suspect]
     Route: 058
     Dates: start: 20071002, end: 20080205
  2. COPEGUS [Suspect]
     Route: 048
     Dates: start: 20071002, end: 20080205

REACTIONS (2)
  - ANAEMIA [None]
  - HAEMATURIA [None]
